FAERS Safety Report 22662407 (Version 6)
Quarter: 2024Q1

REPORT INFORMATION
  Report Type: Spontaneous
  Country: JP (occurrence: JP)
  Receive Date: 20230701
  Receipt Date: 20240130
  Transmission Date: 20240409
  Serious: Yes (Death, Hospitalization, Other)
  Sender: FDA-Public Use
  Company Number: JP-UNITED THERAPEUTICS-UNT-2021-013816

PATIENT
  Sex: Male
  Weight: 86.1 kg

DRUGS (21)
  1. REMODULIN [Suspect]
     Active Substance: TREPROSTINIL
     Indication: Pulmonary arterial hypertension
     Dosage: UNK, CONTINUING
     Route: 058
     Dates: start: 20201027, end: 2020
  2. REMODULIN [Suspect]
     Active Substance: TREPROSTINIL
     Dosage: UNK, CONTINUING
     Route: 058
     Dates: end: 20221004
  3. REMODULIN [Suspect]
     Active Substance: TREPROSTINIL
     Indication: Pulmonary arterial hypertension
     Dosage: UNK, CONTINUING
     Route: 041
     Dates: start: 20201124, end: 2020
  4. REMODULIN [Suspect]
     Active Substance: TREPROSTINIL
     Dosage: INCREASED TO APPROXIMATELY 0.020 ?G/KG, CONTINUING
     Route: 041
     Dates: start: 2020
  5. REMODULIN [Suspect]
     Active Substance: TREPROSTINIL
     Dosage: UNK (0.4 ML), CONTINUING
     Route: 041
     Dates: end: 20210716
  6. REMODULIN [Suspect]
     Active Substance: TREPROSTINIL
     Dosage: UNK (50 ML AT A RATE OF 3 ML/HR), CONTINUING
     Route: 041
     Dates: start: 20210716, end: 202107
  7. REMODULIN [Suspect]
     Active Substance: TREPROSTINIL
     Dosage: 0.0055 ?G/KG, CONTINUING
     Route: 041
     Dates: start: 202107, end: 202107
  8. REMODULIN [Suspect]
     Active Substance: TREPROSTINIL
     Dosage: UNK (DOSE DECREASED), CONTINUING
     Route: 041
     Dates: start: 202107
  9. REMODULIN [Suspect]
     Active Substance: TREPROSTINIL
     Dosage: 0.080 ?G/KG, CONTINUING
     Route: 041
  10. TADALAFIL [Concomitant]
     Active Substance: TADALAFIL
     Indication: Pulmonary arterial hypertension
     Dosage: UNK
     Route: 048
  11. AMBRISENTAN [Concomitant]
     Active Substance: AMBRISENTAN
     Indication: Pulmonary arterial hypertension
     Dosage: UNK
     Route: 048
  12. PIMOBENDAN [Concomitant]
     Active Substance: PIMOBENDAN
     Indication: Pulmonary arterial hypertension
     Dosage: 2.5 MG, QD
     Route: 048
  13. MACITENTAN [Concomitant]
     Active Substance: MACITENTAN
     Indication: Product used for unknown indication
     Dosage: 10 MG, QD
     Route: 048
  14. RIOCIGUAT [Concomitant]
     Active Substance: RIOCIGUAT
     Indication: Product used for unknown indication
     Dosage: 4.5 MG, QD
     Route: 048
  15. RIOCIGUAT [Concomitant]
     Active Substance: RIOCIGUAT
     Dosage: 6 MG, QD
     Route: 048
  16. AZOSEMIDE [Concomitant]
     Active Substance: AZOSEMIDE
     Indication: Product used for unknown indication
     Dosage: 30 MG, QD
     Route: 048
  17. APIXABAN [Concomitant]
     Active Substance: APIXABAN
     Indication: Product used for unknown indication
     Dosage: 10 MG, QD
     Route: 048
  18. LEVETIRACETAM [Concomitant]
     Active Substance: LEVETIRACETAM
     Indication: Product used for unknown indication
     Dosage: 500 MG, QD
     Route: 048
  19. VALPROATE SODIUM [Concomitant]
     Active Substance: VALPROATE SODIUM
     Indication: Product used for unknown indication
     Dosage: 1200 MG, QD
     Route: 048
  20. SELEXIPAG [Concomitant]
     Active Substance: SELEXIPAG
     Indication: Pulmonary arterial hypertension
     Dosage: 3.2 MG
     Route: 048
  21. OXYGEN [Concomitant]
     Active Substance: OXYGEN
     Indication: Product used for unknown indication
     Dosage: UNK (LONG TERM)
     Route: 065

REACTIONS (4)
  - Coronavirus infection [Fatal]
  - Cardiac failure [Fatal]
  - Pulmonary hypertension [Fatal]
  - Septic shock [Unknown]

NARRATIVE: CASE EVENT DATE: 20210101
